FAERS Safety Report 9475206 (Version 1)
Quarter: 2013Q3

REPORT INFORMATION
  Report Type: Spontaneous
  Country: DE (occurrence: DE)
  Receive Date: 20130825
  Receipt Date: 20130825
  Transmission Date: 20140515
  Serious: Yes (Other)
  Sender: FDA-Public Use
  Company Number: DE-MYLANLABS-2013S1018124

PATIENT
  Sex: Male

DRUGS (1)
  1. LAMOTRIGIN [Suspect]
     Dosage: 75 [MG/D ]
     Route: 063

REACTIONS (3)
  - Diarrhoea neonatal [Recovered/Resolved]
  - Faeces discoloured [Recovered/Resolved]
  - Exposure during breast feeding [Recovered/Resolved]
